FAERS Safety Report 10354029 (Version 1)
Quarter: 2014Q3

REPORT INFORMATION
  Report Type: Spontaneous
  Country: DE (occurrence: DE)
  Receive Date: 20140731
  Receipt Date: 20140731
  Transmission Date: 20150326
  Serious: Yes (Other)
  Sender: FDA-Public Use
  Company Number: DE-BAUSCH-BL-2014-003573

PATIENT
  Age: 39 Year
  Sex: Female
  Weight: 118 kg

DRUGS (1)
  1. GENT-OPHTAL AUGENSALBE [Suspect]
     Active Substance: GENTAMICIN SULFATE
     Indication: EYE INFLAMMATION
     Route: 047
     Dates: start: 20140714, end: 20140714

REACTIONS (6)
  - Dyspnoea [Recovered/Resolved]
  - Local swelling [Recovered/Resolved]
  - Thirst [Not Recovered/Not Resolved]
  - Pain in jaw [Unknown]
  - Cardiovascular disorder [Not Recovered/Not Resolved]
  - Swelling face [Recovered/Resolved]

NARRATIVE: CASE EVENT DATE: 20140715
